FAERS Safety Report 12053926 (Version 1)
Quarter: 2016Q1

REPORT INFORMATION
  Report Type: Spontaneous
  Country: US (occurrence: US)
  Receive Date: 20160209
  Receipt Date: 20160209
  Transmission Date: 20160526
  Serious: No
  Sender: FDA-Public Use
  Company Number: US-SA-2015SA223036

PATIENT
  Age: 67 Year
  Sex: Male

DRUGS (4)
  1. SOMA [Concomitant]
     Active Substance: CARISOPRODOL
  2. OXYCODONE [Concomitant]
     Active Substance: OXYCODONE
  3. ALIROCUMAB PREFILLED PEN [Concomitant]
     Active Substance: ALIROCUMAB
     Dates: start: 2015
  4. PRALUENT [Suspect]
     Active Substance: ALIROCUMAB
     Indication: BLOOD CHOLESTEROL INCREASED
     Route: 065
     Dates: start: 2015

REACTIONS (1)
  - Back injury [Not Recovered/Not Resolved]

NARRATIVE: CASE EVENT DATE: 20151221
